FAERS Safety Report 20508782 (Version 4)
Quarter: 2022Q2

REPORT INFORMATION
  Report Type: Report from Study
  Country: GB (occurrence: GB)
  Receive Date: 20220223
  Receipt Date: 20220512
  Transmission Date: 20220721
  Serious: Yes (Other)
  Sender: FDA-Public Use
  Company Number: GB-NOVARTISPH-NVSC2022GB005312

PATIENT
  Age: 25 Month
  Sex: Male
  Weight: 8 kg

DRUGS (4)
  1. ZOLGENSMA [Suspect]
     Active Substance: ONASEMNOGENE ABEPARVOVEC-XIOI
     Indication: Spinal muscular atrophy
     Dosage: (8.8X10^14 VG), ONCE/SINGLE
     Route: 042
     Dates: start: 20210921, end: 20210921
  2. PREDNISOLONE [Concomitant]
     Active Substance: PREDNISOLONE
     Indication: Product used for unknown indication
     Dosage: UNK, (ROUTINEY GIVEN WITH ONASEMOGENE ABEPARVOVEC)
     Route: 065
     Dates: start: 20210920
  3. LANSOPRAZOLE [Concomitant]
     Active Substance: LANSOPRAZOLE
     Indication: Product used for unknown indication
     Dosage: UNK, (ROUTINEY GIVEN WITH ONASEMOGENE ABEPARVOVEC)
     Route: 065
     Dates: start: 20210920
  4. NUSINERSEN [Concomitant]
     Active Substance: NUSINERSEN
     Indication: Spinal muscular atrophy
     Dosage: UNK
     Route: 065
     Dates: start: 20210528

REACTIONS (3)
  - Pseudomonas infection [Recovered/Resolved]
  - Liver function test increased [Recovered/Resolved]
  - Aspartate aminotransferase increased [Recovered/Resolved]

NARRATIVE: CASE EVENT DATE: 20210927
